FAERS Safety Report 22013887 (Version 3)
Quarter: 2023Q2

REPORT INFORMATION
  Report Type: Spontaneous
  Country: JP (occurrence: JP)
  Receive Date: 20230221
  Receipt Date: 20230420
  Transmission Date: 20230721
  Serious: Yes (Other)
  Sender: FDA-Public Use
  Company Number: JP-ONO-2023JP000295

PATIENT
  Age: 76 Year
  Sex: Male
  Weight: 55 kg

DRUGS (4)
  1. OPDIVO [Suspect]
     Active Substance: NIVOLUMAB
     Indication: Oesophageal carcinoma
     Dosage: UNK, Q2W
     Route: 041
     Dates: start: 20220722
  2. NEXIUM [Concomitant]
     Active Substance: ESOMEPRAZOLE MAGNESIUM
     Indication: Gastrooesophageal reflux disease
  3. ETIZOLAM [Concomitant]
     Active Substance: ETIZOLAM
     Indication: Mental disorder
     Route: 048
  4. LOXOPROFEN SODIUM [Concomitant]
     Active Substance: LOXOPROFEN SODIUM
     Indication: Spinal stenosis
     Route: 048

REACTIONS (27)
  - Nocturia [Unknown]
  - Chest pain [Recovering/Resolving]
  - Dyspnoea [Unknown]
  - Hypoaesthesia [Not Recovered/Not Resolved]
  - Pain in extremity [Not Recovered/Not Resolved]
  - Thirst [Unknown]
  - Haematemesis [Unknown]
  - Dysstasia [Unknown]
  - Physical deconditioning [Unknown]
  - Dizziness [Unknown]
  - Dysphonia [Unknown]
  - Night sweats [Unknown]
  - Stomatitis [Unknown]
  - Muscle rigidity [Unknown]
  - Malaise [Unknown]
  - Somnolence [Unknown]
  - Pruritus [Unknown]
  - Dry skin [Unknown]
  - Arthralgia [Unknown]
  - Muscle atrophy [Unknown]
  - Back pain [Unknown]
  - Pain [Unknown]
  - Dry mouth [Unknown]
  - Ageusia [Unknown]
  - Quadriplegia [Unknown]
  - Skin disorder [Unknown]
  - Pain [Unknown]

NARRATIVE: CASE EVENT DATE: 20230201
